FAERS Safety Report 9837452 (Version 1)
Quarter: 2014Q1

REPORT INFORMATION
  Report Type: Spontaneous
  Country: US (occurrence: US)
  Receive Date: 20140123
  Receipt Date: 20140123
  Transmission Date: 20141002
  Serious: Yes (Hospitalization)
  Sender: FDA-Public Use
  Company Number: US-BAYER-2014-009694

PATIENT
  Age: 33 Year
  Sex: Female
  Weight: 89.8 kg

DRUGS (12)
  1. YAZ [Suspect]
  2. NEURONTIN [Concomitant]
     Dosage: 400 MG, UNK
     Route: 048
     Dates: start: 20090616
  3. CIPRO [Concomitant]
     Dosage: UNK
     Route: 048
     Dates: start: 20090616
  4. BACTRIM [Concomitant]
     Dosage: UNK
     Route: 048
     Dates: start: 20090616
  5. CLINDAMYCIN [Concomitant]
     Dosage: UNK
     Route: 048
     Dates: start: 20090616
  6. DEXAMETHASONE [Concomitant]
     Dosage: UNK
     Route: 048
     Dates: start: 20090616
  7. SEROQUEL [Concomitant]
     Dosage: 100 MG, UNK
     Route: 048
     Dates: start: 20090624
  8. BACLOFEN [Concomitant]
     Dosage: 10 MG, UNK
     Route: 048
     Dates: start: 20090624
  9. WELLBUTRIN [Concomitant]
     Dosage: 150 MG, UNK
     Route: 048
     Dates: start: 20090624
  10. METOPROLOL [Concomitant]
     Dosage: 25 MG, UNK
     Route: 048
     Dates: start: 20090624
  11. VALIUM [Concomitant]
     Dosage: 10 MG, UNK
     Route: 048
     Dates: start: 20090624
  12. DURAGESIC [Concomitant]
     Dosage: UNK
     Route: 048
     Dates: start: 20090624

REACTIONS (2)
  - Deep vein thrombosis [Recovered/Resolved]
  - Pulmonary embolism [Recovered/Resolved]
